FAERS Safety Report 6021924-8 (Version None)
Quarter: 2008Q4

REPORT INFORMATION
  Report Type: 
  Country: None (occurrence: None)
  Receive Date: 20081229
  Receipt Date: 20081217
  Transmission Date: 20090506
  Serious: Yes (Other)
  Sender: FDA-Public Use
  Company Number: DE-ROCHE-603983

PATIENT
  Age: 71 Year
  Sex: Female
  Weight: 70 kg

DRUGS (1)
  1. BONIVA [Suspect]
     Indication: OSTEOPOROSIS
     Dosage: CUMULATIVE DOSE TO THE FIRST REACTION: 6 MILLIGRAMS
     Route: 042
     Dates: start: 20080911

REACTIONS (4)
  - FLUSHING [None]
  - MEDICATION ERROR [None]
  - PRURITUS [None]
  - SKIN BURNING SENSATION [None]
